FAERS Safety Report 7660061-3 (Version None)
Quarter: 2011Q3

REPORT INFORMATION
  Report Type: 
  Country: None (occurrence: None)
  Receive Date: 20110805
  Receipt Date: 20110804
  Transmission Date: 20111222
  Serious: No
  Sender: FDA-Public Use
  Company Number: US-PFIZER INC-2011179028

PATIENT
  Sex: Female
  Weight: 63.492 kg

DRUGS (1)
  1. ADVIL LIQUI-GELS [Suspect]
     Indication: MYALGIA
     Dosage: UNK, AS NEEDED
     Route: 048
     Dates: start: 19960101

REACTIONS (1)
  - GLOSSODYNIA [None]
